FAERS Safety Report 5165766-4 (Version None)
Quarter: 2006Q4

REPORT INFORMATION
  Report Type: 
  Country: None (occurrence: None)
  Receive Date: 20061128
  Receipt Date: 20061113
  Transmission Date: 20070319
  Serious: Yes (Hospitalization)
  Sender: FDA-Public Use
  Company Number: GXKR2006TW07354

PATIENT
  Age: 66 Year
  Sex: Male

DRUGS (4)
  1. CEFUROXIME [Suspect]
     Indication: INFECTION
  2. FLUCONAZOLE [Suspect]
     Indication: INFECTION
  3. TICARCILLIN/CLAVULANATE POTASSIUM (CLAVULANATE POTASSIUM, TICARCILLIN) [Suspect]
     Indication: INFECTION
  4. MEROPENEM (MEROPENEM) [Suspect]
     Indication: INFECTION

REACTIONS (2)
  - CLOSTRIDIUM DIFFICILE COLITIS [None]
  - OCCULT BLOOD POSITIVE [None]
